FAERS Safety Report 5236061-X (Version None)
Quarter: 2007Q1

REPORT INFORMATION
  Report Type: 
  Country: None (occurrence: None)
  Receive Date: 20070212
  Receipt Date: 20070206
  Transmission Date: 20070707
  Serious: Yes (Hospitalization)
  Sender: FDA-Public Use
  Company Number: US-SANOFI-SYNTHELABO-A03200700980

PATIENT
  Age: 55 Year
  Sex: Female
  Weight: 56.7 kg

DRUGS (2)
  1. HYDROCODONE [Concomitant]
     Dosage: UNK
     Route: 048
  2. AMBIEN [Suspect]
     Indication: DRUG USE FOR UNKNOWN INDICATION
     Route: 048

REACTIONS (4)
  - AMNESIA [None]
  - IMPAIRED DRIVING ABILITY [None]
  - ROAD TRAFFIC ACCIDENT [None]
  - SLEEP WALKING [None]
